FAERS Safety Report 4336410-0 (Version None)
Quarter: 2004Q2

REPORT INFORMATION
  Report Type: 
  Country: None (occurrence: None)
  Receive Date: 20040407
  Receipt Date: 20040326
  Transmission Date: 20050107
  Serious: Yes (Other)
  Sender: FDA-Public Use
  Company Number: US-JNJFOC-20030800774

PATIENT
  Age: 17 Year
  Sex: Male
  Weight: 104.3273 kg

DRUGS (4)
  1. REMICADE [Suspect]
     Indication: CROHN'S DISEASE
     Dosage: 500 MG, 1 IN 1 TOTAL, INTRAVENOUS
     Route: 042
     Dates: start: 20030619
  2. AZULFADINE (SULFASALAZINE) [Concomitant]
  3. VIOXX [Concomitant]
  4. MERCAPTOPURINE [Concomitant]

REACTIONS (2)
  - BLINDNESS UNILATERAL [None]
  - OPTIC NEURITIS [None]
